FAERS Safety Report 9553331 (Version 1)
Quarter: 2013Q3

REPORT INFORMATION
  Report Type: Spontaneous
  Country: US (occurrence: None)
  Receive Date: 20130924
  Receipt Date: 20130924
  Transmission Date: 20140515
  Serious: No
  Sender: FDA-Public Use
  Company Number: None

PATIENT
  Age: 62 Year
  Sex: Female
  Weight: 58.97 kg

DRUGS (1)
  1. NEURONTIN [Suspect]
     Indication: TREMOR
     Dosage: 1 PILL ONCE DAILY TAKEN BY MOUTH

REACTIONS (5)
  - Eye movement disorder [None]
  - Asthenia [None]
  - Tremor [None]
  - Muscle twitching [None]
  - Dyskinesia [None]
